FAERS Safety Report 9351815 (Version 1)
Quarter: 2013Q2

REPORT INFORMATION
  Report Type: Spontaneous
  Country: DE (occurrence: None)
  Receive Date: 20130612
  Receipt Date: 20130612
  Transmission Date: 20140414
  Serious: Yes (Other)
  Sender: FDA-Public Use
  Company Number: 2013-227

PATIENT
  Age: 34 Year
  Sex: Female

DRUGS (14)
  1. CLOZAPINE [Suspect]
     Indication: AGGRESSION
     Route: 048
  2. CLOZAPINE [Suspect]
     Indication: IRRITABILITY
     Route: 048
  3. CLOZAPINE [Suspect]
     Indication: TACHYPHRENIA
     Route: 048
  4. CLOZAPINE [Suspect]
     Indication: PSYCHOMOTOR HYPERACTIVITY
     Route: 048
  5. PERAZINE [Suspect]
     Indication: SCHIZOPHRENIA, CATATONIC TYPE
     Route: 048
  6. LITHIUM CARBONATE (LITHIUM CARBONATE) [Concomitant]
  7. LAMOTRIGINE (LAMOTRIGINE) [Concomitant]
  8. HALOPERIDOL (HALOPERIDOL) [Concomitant]
  9. BIPERIDEN (BIPERIDEN HYDROCHLORIDE) [Concomitant]
  10. PIRENZEPINE (PIRENZEPINE) [Concomitant]
  11. L-THYROXINE (L-THYROXINE) [Concomitant]
  12. PANTOPRAZOLE (PANTOPRAZOLE) [Concomitant]
  13. VALPROATE SODIUM (VALPROATE SODIUM) [Concomitant]
  14. SERTRALINE (SERTRALINE) [Concomitant]

REACTIONS (3)
  - Antipsychotic drug level increased [None]
  - Drug interaction [None]
  - Fatigue [None]
